FAERS Safety Report 10474751 (Version 2)
Quarter: 2014Q3

REPORT INFORMATION
  Report Type: Spontaneous
  Country: US (occurrence: US)
  Receive Date: 20140925
  Receipt Date: 20140925
  Transmission Date: 20150326
  Serious: Yes (Other)
  Sender: FDA-Public Use
  Company Number: US-UCBSA-2014008277

PATIENT
  Age: 43 Year
  Sex: Female
  Weight: 64.41 kg

DRUGS (16)
  1. COLESTID [Concomitant]
     Active Substance: COLESTIPOL HYDROCHLORIDE
     Indication: CROHN^S DISEASE
     Dosage: 1 G, 2X/DAY (BID)
     Route: 048
  2. FLONASE [Concomitant]
     Active Substance: FLUTICASONE PROPIONATE
     Indication: SINUSITIS
     Dosage: TWO PUFFS NIGHTLY
     Dates: start: 201211
  3. PROMETHAZINE [Concomitant]
     Active Substance: PROMETHAZINE\PROMETHAZINE HYDROCHLORIDE
     Indication: NAUSEA
     Dosage: 25 MG, 1 TABLET, EVERY 8HOURS, AS NEEDED
     Route: 048
     Dates: start: 201304
  4. LIDOCAINE. [Concomitant]
     Active Substance: LIDOCAINE
     Indication: BACK PAIN
  5. NIACIN. [Concomitant]
     Active Substance: NIACIN
     Indication: HYPERTRIGLYCERIDAEMIA
     Dosage: 500 MG, AT BEDTIME/ EVENING
     Route: 048
     Dates: start: 201302
  6. CIMZIA [Suspect]
     Active Substance: CERTOLIZUMAB PEGOL
     Indication: CROHN^S DISEASE
     Dosage: 400 MG, EV 3 WEEKS
     Route: 058
     Dates: start: 201308, end: 20140802
  7. TYLENOL [Concomitant]
     Active Substance: ACETAMINOPHEN
     Indication: PAIN
     Dosage: 1 TABLET EVERY 4 TO 6 HOURS, AS NEEDED
     Route: 048
  8. CIMZIA [Suspect]
     Active Substance: CERTOLIZUMAB PEGOL
     Indication: SPONDYLITIS
  9. SULFASALAZINE. [Concomitant]
     Active Substance: SULFASALAZINE
     Indication: CROHN^S DISEASE
     Dosage: 500 MG, 2X/DAY (BID)
     Route: 048
     Dates: start: 201407
  10. TRAMADOL [Concomitant]
     Active Substance: TRAMADOL
     Indication: BACK PAIN
     Dosage: 50 MG, 2 TABLETS, ONCE EVERY 4 HOURS, AS NEEDED
     Route: 048
     Dates: start: 201304
  11. XANAX [Concomitant]
     Active Substance: ALPRAZOLAM
     Dosage: 0.25 MG, UNK
  12. METFORMIN [Concomitant]
     Active Substance: METFORMIN HYDROCHLORIDE
     Indication: INSULIN RESISTANCE
     Dosage: 500 MG, ONCE DAILY (QD)
     Route: 048
     Dates: start: 200609
  13. FLEXERIL [Concomitant]
     Active Substance: CYCLOBENZAPRINE HYDROCHLORIDE
     Indication: MUSCLE SPASMS
     Dosage: TAKE 1 TABLET, EVERY 6 HOURS, AS NEEDED
     Route: 048
  14. OMEPRAZOLE. [Concomitant]
     Active Substance: OMEPRAZOLE
     Indication: GASTROOESOPHAGEAL REFLUX DISEASE
     Dosage: 40 MG, ONCE DAILY (QD)
     Route: 048
     Dates: start: 201304
  15. ZYRTEC [Concomitant]
     Active Substance: CETIRIZINE HYDROCHLORIDE
     Indication: HYPERSENSITIVITY
     Dosage: 10 MG, ONCE DAILY (QD)
     Route: 048
     Dates: start: 201211
  16. FOLIC ACID. [Concomitant]
     Active Substance: FOLIC ACID
     Dosage: 1 MG, ONCE DAILY (QD)
     Route: 048
     Dates: start: 201407

REACTIONS (8)
  - Sinusitis [Unknown]
  - Photosensitivity reaction [Recovered/Resolved]
  - Musculoskeletal stiffness [Recovered/Resolved]
  - Inappropriate schedule of drug administration [Unknown]
  - Mycobacterium tuberculosis complex test positive [Not Recovered/Not Resolved]
  - Headache [Recovering/Resolving]
  - Neck pain [Recovered/Resolved]
  - Dizziness postural [Recovered/Resolved]

NARRATIVE: CASE EVENT DATE: 201308
